FAERS Safety Report 9414463 (Version 1)
Quarter: 2013Q3

REPORT INFORMATION
  Report Type: Spontaneous
  Country: JP (occurrence: JP)
  Receive Date: 20130723
  Receipt Date: 20130723
  Transmission Date: 20140515
  Serious: Yes (Other)
  Sender: FDA-Public Use
  Company Number: JP-009507513-1307JPN011285

PATIENT
  Sex: 0

DRUGS (1)
  1. DIAZOXIDE CAPSULES 25 MG ^MSD^ [Suspect]
     Route: 048

REACTIONS (3)
  - Cardiogenic shock [Unknown]
  - Cardiac failure congestive [Unknown]
  - Circulatory collapse [Unknown]
